FAERS Safety Report 18629212 (Version 2)
Quarter: 2021Q4

REPORT INFORMATION
  Report Type: Report from Study
  Country: PE (occurrence: PE)
  Receive Date: 20201217
  Receipt Date: 20211124
  Transmission Date: 20220303
  Serious: Yes (Life-Threatening, Hospitalization, Other)
  Sender: FDA-Public Use
  Company Number: PE-TAKEDA-2020TUS058570

PATIENT
  Age: 38 Year
  Sex: Male

DRUGS (1)
  1. VEDOLIZUMAB [Suspect]
     Active Substance: VEDOLIZUMAB
     Indication: Colitis ulcerative
     Dosage: 300 MILLIGRAM, Q4WEEKS
     Route: 042
     Dates: start: 20190220

REACTIONS (10)
  - Pulmonary embolism [Unknown]
  - Intracardiac thrombus [Unknown]
  - Dyspnoea [Unknown]
  - Asthenia [Unknown]
  - Abdominal pain [Unknown]
  - Chest discomfort [Unknown]
  - Thrombosis [Unknown]
  - Colitis ulcerative [Unknown]
  - Pain in extremity [Unknown]
  - Off label use [Unknown]

NARRATIVE: CASE EVENT DATE: 20190220
